FAERS Safety Report 7361501-X (Version None)
Quarter: 2011Q1

REPORT INFORMATION
  Report Type: 
  Country: None (occurrence: None)
  Receive Date: 20110305
  Receipt Date: 20110305
  Transmission Date: 20110831
  Serious: No
  Sender: FDA-Public Use
  Company Number: None

PATIENT
  Age: 35 Year
  Sex: Male
  Weight: 79.3795 kg

DRUGS (1)
  1. CIPROFLOXACIN [Suspect]
     Indication: DIARRHOEA INFECTIOUS
     Dosage: 500 MG 2 X DAY PO
     Route: 048
     Dates: start: 20100401, end: 20100409

REACTIONS (9)
  - SENSORY DISTURBANCE [None]
  - ARTHRALGIA [None]
  - PAIN [None]
  - BOWEL MOVEMENT IRREGULARITY [None]
  - DIARRHOEA [None]
  - TENDON RUPTURE [None]
  - DIZZINESS [None]
  - ANXIETY [None]
  - PALPITATIONS [None]
